FAERS Safety Report 10143056 (Version 1)
Quarter: 2014Q2

REPORT INFORMATION
  Report Type: Spontaneous
  Country: US (occurrence: US)
  Receive Date: 20140430
  Receipt Date: 20140430
  Transmission Date: 20141212
  Serious: Yes (Hospitalization)
  Sender: FDA-Public Use
  Company Number: US-SA-2014SA052720

PATIENT
  Age: 61 Year
  Sex: Male

DRUGS (3)
  1. LANTUS SOLOSTAR [Suspect]
     Indication: DIABETES MELLITUS
     Dosage: DOSE:55 UNIT(S)
     Route: 065
     Dates: start: 2007
  2. SOLOSTAR [Concomitant]
     Dates: start: 2007
  3. NOVOLOG [Concomitant]

REACTIONS (1)
  - Hospitalisation [Unknown]
